FAERS Safety Report 7224202-4 (Version None)
Quarter: 2011Q1

REPORT INFORMATION
  Report Type: 
  Country: None (occurrence: None)
  Receive Date: 20110106
  Receipt Date: 20110106
  Transmission Date: 20110831
  Serious: No
  Sender: FDA-Public Use
  Company Number: None

PATIENT
  Age: 56 Year
  Sex: Male

DRUGS (1)
  1. PHENYTOIN [Suspect]
     Indication: EPILEPSY
     Dosage: TAKE 3 CAPSULES BY MOUTH EVERY MORNING AND 2 CAPSULES AT BEDTIME

REACTIONS (1)
  - CONVULSION [None]
